FAERS Safety Report 8443981-1 (Version None)
Quarter: 2012Q2

REPORT INFORMATION
  Report Type: 
  Country: None (occurrence: None)
  Receive Date: 20120618
  Receipt Date: 20120611
  Transmission Date: 20120825
  Serious: Yes (Hospitalization)
  Sender: FDA-Public Use
  Company Number: PHHY2012TR051063

PATIENT
  Sex: Female
  Weight: 22 kg

DRUGS (1)
  1. EXJADE [Suspect]
     Indication: HEREDITARY SPHEROCYTOSIS
     Dosage: 750 MG, UNK
     Route: 048

REACTIONS (2)
  - GENERAL PHYSICAL HEALTH DETERIORATION [None]
  - VARICELLA [None]
